FAERS Safety Report 16219835 (Version 7)
Quarter: 2025Q3

REPORT INFORMATION
  Report Type: Spontaneous
  Country: EU (occurrence: EU)
  Receive Date: 20190420
  Receipt Date: 20250818
  Transmission Date: 20251021
  Serious: Yes (Death, Hospitalization, Disabling, Other)
  Sender: AUROBINDO
  Company Number: None

PATIENT
  Age: 64 Year
  Sex: Female

DRUGS (27)
  1. FLUCONAZOLE [Interacting]
     Active Substance: FLUCONAZOLE
     Indication: Oral disorder
     Dosage: 200 MILLIGRAM, ONCE A DAY
     Route: 048
  2. FLUCONAZOLE [Interacting]
     Active Substance: FLUCONAZOLE
     Indication: Oral fungal infection
  3. FLUCONAZOLE [Interacting]
     Active Substance: FLUCONAZOLE
     Indication: Fungal infection
  4. OLANZAPINE [Interacting]
     Active Substance: OLANZAPINE
     Indication: Insomnia
     Dosage: 10 MILLIGRAM, ONCE A DAY (TAKEN BEFORE GOING TO SLEEP)
     Route: 065
  5. OLANZAPINE [Interacting]
     Active Substance: OLANZAPINE
     Indication: Nausea
  6. OLANZAPINE [Interacting]
     Active Substance: OLANZAPINE
     Indication: Psychotic disorder
  7. OLANZAPINE [Interacting]
     Active Substance: OLANZAPINE
     Indication: Initial insomnia
  8. OLANZAPINE [Interacting]
     Active Substance: OLANZAPINE
     Indication: Sleep disorder
  9. AMITRIPTYLINE [Interacting]
     Active Substance: AMITRIPTYLINE
     Indication: Analgesic therapy
     Dosage: 50 MILLIGRAM, 3 TIMES A DAY (150 MILLIGRAM, DAILY)
     Route: 065
  10. AMITRIPTYLINE [Interacting]
     Active Substance: AMITRIPTYLINE
     Indication: Psychotic disorder
     Dosage: 150 MILLIGRAM, ONCE A DAY
     Route: 065
  11. AMITRIPTYLINE [Interacting]
     Active Substance: AMITRIPTYLINE
     Indication: Cervix carcinoma
  12. AMITRIPTYLINE [Interacting]
     Active Substance: AMITRIPTYLINE
     Indication: Neuralgia
  13. AMITRIPTYLINE [Interacting]
     Active Substance: AMITRIPTYLINE
     Indication: Cancer pain
  14. AMITRIPTYLINE [Interacting]
     Active Substance: AMITRIPTYLINE
     Indication: Pain
  15. AMITRIPTYLINE [Interacting]
     Active Substance: AMITRIPTYLINE
     Indication: Sleep disorder
  16. MORPHINE [Interacting]
     Active Substance: MORPHINE
     Indication: Analgesic therapy
     Dosage: 240 MILLIGRAM, ONCE A DAY
     Route: 048
  17. MORPHINE [Interacting]
     Active Substance: MORPHINE
     Indication: Cervix carcinoma
  18. MORPHINE [Interacting]
     Active Substance: MORPHINE
     Indication: Neuralgia
  19. MORPHINE [Interacting]
     Active Substance: MORPHINE
     Indication: Pain
  20. MORPHINE [Interacting]
     Active Substance: MORPHINE
     Indication: Cancer pain
  21. FUROSEMIDE [Suspect]
     Active Substance: FUROSEMIDE
     Indication: Prophylaxis
     Dosage: 60 MILLIGRAM, ONCE A DAY (PERIODICALLY, DOSE WAS INCREASED TO 60 MG/D)
     Route: 065
  22. FUROSEMIDE [Suspect]
     Active Substance: FUROSEMIDE
     Indication: Cervix carcinoma
     Dosage: 60 MILLIGRAM, ONCE A DAY
     Route: 065
  23. FUROSEMIDE [Suspect]
     Active Substance: FUROSEMIDE
     Indication: Oedema peripheral
     Route: 065
  24. POTASSIUM [Suspect]
     Active Substance: POTASSIUM
     Indication: Cervix carcinoma
     Route: 065
  25. UNSPECIFIED INGREDIENT [Suspect]
     Active Substance: UNSPECIFIED INGREDIENT
     Indication: Prophylaxis
     Route: 065
  26. UNSPECIFIED INGREDIENT [Suspect]
     Active Substance: UNSPECIFIED INGREDIENT
     Indication: Cervix carcinoma
     Route: 065
  27. DALTEPARIN SODIUM [Concomitant]
     Active Substance: DALTEPARIN SODIUM
     Indication: Product used for unknown indication
     Route: 065

REACTIONS (17)
  - Pulmonary embolism [Fatal]
  - Drug interaction [Fatal]
  - Venous thrombosis [Fatal]
  - Cardio-respiratory arrest [Fatal]
  - Somnolence [Fatal]
  - Peripheral swelling [Fatal]
  - Haemoptysis [Fatal]
  - Cardiac arrest [Fatal]
  - Chest pain [Fatal]
  - Dyspnoea [Fatal]
  - Cough [Fatal]
  - Cyanosis [Fatal]
  - Oedema peripheral [Fatal]
  - Confusional state [Fatal]
  - Swelling [Fatal]
  - Insomnia [Recovering/Resolving]
  - Nausea [Recovered/Resolved]
